FAERS Safety Report 14624102 (Version 2)
Quarter: 2018Q2

REPORT INFORMATION
  Report Type: Spontaneous
  Country: IT (occurrence: IT)
  Receive Date: 20180312
  Receipt Date: 20180517
  Transmission Date: 20180711
  Serious: Yes (Other)
  Sender: FDA-Public Use
  Company Number: IT-AMGEN-ITASP2018032994

PATIENT
  Sex: Female

DRUGS (1)
  1. FILGRASTIM [Suspect]
     Active Substance: FILGRASTIM
     Indication: PNEUMONIA
     Dosage: UNK
     Route: 065

REACTIONS (6)
  - Malignant anorectal neoplasm [Recovered/Resolved]
  - Skin papilloma [Unknown]
  - Off label use [Unknown]
  - Vulvar dysplasia [Unknown]
  - Papilloma viral infection [Unknown]
  - Varicella zoster virus infection [Unknown]
